FAERS Safety Report 7506703-4 (Version None)
Quarter: 2011Q2

REPORT INFORMATION
  Report Type: 
  Country: None (occurrence: None)
  Receive Date: 20110526
  Receipt Date: 20110325
  Transmission Date: 20111010
  Serious: Yes (Hospitalization, Other)
  Sender: FDA-Public Use
  Company Number: US-BAYER-2011-024349

PATIENT
  Sex: Female
  Weight: 136.5 kg

DRUGS (2)
  1. AVELOX [Suspect]
     Indication: RESPIRATORY TRACT INFECTION
     Dosage: 400 MG, QD
     Dates: start: 20100901, end: 20100901
  2. AVELOX [Suspect]
     Indication: SINUSITIS
     Dosage: 500 MG, QD
     Route: 048
     Dates: start: 20100101, end: 20100101

REACTIONS (4)
  - THROAT IRRITATION [None]
  - HYPERSENSITIVITY [None]
  - URTICARIA [None]
  - EAR PRURITUS [None]
